FAERS Safety Report 15771648 (Version 1)
Quarter: 2018Q4

REPORT INFORMATION
  Report Type: Spontaneous
  Country: RU (occurrence: RU)
  Receive Date: 20181228
  Receipt Date: 20181228
  Transmission Date: 20190205
  Serious: Yes (Other)
  Sender: FDA-Public Use
  Company Number: IND-RU-009507513-1812RUS007239

PATIENT

DRUGS (1)
  1. ARCOXIA [Suspect]
     Active Substance: ETORICOXIB
     Indication: OSTEOARTHRITIS
     Dosage: UNK
     Route: 048

REACTIONS (5)
  - Pruritus [Unknown]
  - Rash [Unknown]
  - Hypertension [Unknown]
  - Pyrexia [Unknown]
  - Asphyxia [Unknown]

NARRATIVE: CASE EVENT DATE: 201811
